FAERS Safety Report 22635966 (Version 1)
Quarter: 2023Q2

REPORT INFORMATION
  Report Type: Spontaneous
  Country: US (occurrence: US)
  Receive Date: 20230623
  Receipt Date: 20230623
  Transmission Date: 20230721
  Serious: Yes (Hospitalization, Other)
  Sender: FDA-Public Use
  Company Number: US-NEUROCRINE BIOSCIENCES INC.-2023NBI04965

PATIENT

DRUGS (1)
  1. INGREZZA [Suspect]
     Active Substance: VALBENAZINE
     Indication: Product used for unknown indication
     Dosage: 80 MILLIGRAM, QD
     Route: 065

REACTIONS (5)
  - Pancreatic carcinoma [Unknown]
  - Mental disorder [Unknown]
  - Asthenia [Unknown]
  - Tardive dyskinesia [Not Recovered/Not Resolved]
  - Dry mouth [Not Recovered/Not Resolved]
